FAERS Safety Report 25163885 (Version 3)
Quarter: 2025Q2

REPORT INFORMATION
  Report Type: Spontaneous
  Country: JP (occurrence: JP)
  Receive Date: 20250405
  Receipt Date: 20250620
  Transmission Date: 20250716
  Serious: Yes (Hospitalization)
  Sender: ROCHE
  Company Number: JP-CHUGAI-2025010527

PATIENT
  Age: 6 Decade
  Sex: Male
  Weight: 71 kg

DRUGS (4)
  1. TECENTRIQ [Suspect]
     Active Substance: ATEZOLIZUMAB
     Indication: Lung adenocarcinoma
     Dosage: 1200 MILLIGRAM, ONCE/3WEEKS
     Route: 042
     Dates: start: 20250227, end: 20250227
  2. FLUOROURACIL [Suspect]
     Active Substance: FLUOROURACIL
     Indication: Lung adenocarcinoma
     Route: 042
     Dates: start: 20250227, end: 20250313
  3. LEVOLEUCOVORIN CALCIUM [Suspect]
     Active Substance: LEVOLEUCOVORIN CALCIUM
     Indication: Lung adenocarcinoma
     Route: 042
     Dates: start: 20250227, end: 20250313
  4. OXALIPLATIN [Suspect]
     Active Substance: OXALIPLATIN
     Indication: Lung adenocarcinoma
     Route: 042
     Dates: start: 20250227, end: 20250313

REACTIONS (3)
  - Subarachnoid haemorrhage [Not Recovered/Not Resolved]
  - Head injury [Not Recovered/Not Resolved]
  - Brain contusion [Not Recovered/Not Resolved]

NARRATIVE: CASE EVENT DATE: 20250322
